FAERS Safety Report 7700051-5 (Version None)
Quarter: 2011Q3

REPORT INFORMATION
  Report Type: 
  Country: None (occurrence: None)
  Receive Date: 20110822
  Receipt Date: 20110809
  Transmission Date: 20111222
  Serious: Yes (Other)
  Sender: FDA-Public Use
  Company Number: US-ELI_LILLY_AND_COMPANY-US201108003999

PATIENT
  Age: 42 Year
  Sex: Female

DRUGS (2)
  1. MAXALT                                  /USA/ [Concomitant]
     Indication: MIGRAINE
  2. CYMBALTA [Suspect]
     Indication: DEPRESSION
     Dosage: 30 MG, QD
     Dates: start: 20110714, end: 20110809

REACTIONS (3)
  - HYPERHIDROSIS [None]
  - RESTLESSNESS [None]
  - BLISTER [None]
